FAERS Safety Report 15798023 (Version 1)
Quarter: 2019Q1

REPORT INFORMATION
  Report Type: Spontaneous
  Country: US (occurrence: US)
  Receive Date: 20190108
  Receipt Date: 20190108
  Transmission Date: 20190417
  Serious: Yes (Life-Threatening, Other)
  Sender: FDA-Public Use
  Company Number: US-GLAXOSMITHKLINE-US2019000160

PATIENT
  Age: 75 Year
  Sex: Female

DRUGS (2)
  1. BREO ELLIPTA [Suspect]
     Active Substance: FLUTICASONE FUROATE\VILANTEROL TRIFENATATE
     Indication: SARCOIDOSIS
     Dosage: 1 PUFF(S), 1D
     Route: 055
     Dates: start: 201811, end: 20181223
  2. VENTOLIN HFA [Suspect]
     Active Substance: ALBUTEROL SULFATE
     Indication: DYSPNOEA
     Dosage: UNK UNK, U
     Route: 055
     Dates: start: 201606

REACTIONS (9)
  - Chemotherapy [Recovered/Resolved]
  - Gastrointestinal lymphoma [Recovered/Resolved]
  - Dysphonia [Recovered/Resolved]
  - Radiotherapy [Recovered/Resolved]
  - Cough [Recovered/Resolved]
  - Off label use [Recovered/Resolved]
  - Product use in unapproved indication [Recovered/Resolved]
  - Fatigue [Recovered/Resolved]
  - Oropharyngeal pain [Recovered/Resolved]

NARRATIVE: CASE EVENT DATE: 201609
